FAERS Safety Report 21684427 (Version 2)
Quarter: 2022Q4

REPORT INFORMATION
  Report Type: Other
  Country: US (occurrence: US)
  Receive Date: 20221205
  Receipt Date: 20221206
  Transmission Date: 20230113
  Serious: Yes (Hospitalization, Other)
  Sender: FDA-Public Use
  Company Number: US-HLS-202202247

PATIENT
  Age: 20 Decade
  Sex: Male

DRUGS (10)
  1. CLOZAPINE [Suspect]
     Active Substance: CLOZAPINE
     Indication: Psychotic disorder
     Dosage: TITRATED UP TO 400 MG/DAY OVER 3 MONTHS
     Route: 065
  2. CLOZAPINE [Suspect]
     Active Substance: CLOZAPINE
     Indication: Suicidal ideation
     Dosage: TITRATED UP TO 400 MG/DAY OVER 3 MONTHS
     Route: 065
  3. PANTOPRAZOLE [Suspect]
     Active Substance: PANTOPRAZOLE
     Indication: Product used for unknown indication
     Dosage: 40MG/DAY
     Route: 065
  4. GLYCOPYRROLATE [Concomitant]
     Active Substance: GLYCOPYRROLATE
     Indication: Drooling
     Dosage: 1MG AS NECESSARY
     Route: 065
  5. VITAMIN D [Suspect]
     Active Substance: VITAMIN D NOS
     Indication: Product used for unknown indication
     Dosage: 2000 IU/DAY
     Route: 065
  6. MELATONIN [Suspect]
     Active Substance: MELATONIN
     Indication: Product used for unknown indication
     Dosage: 3MG AT NIGHT
     Route: 065
  7. GABAPENTIN [Suspect]
     Active Substance: GABAPENTIN
     Indication: Product used for unknown indication
     Dosage: 600MG/DAY
     Route: 065
  8. LITHIUM CARBONATE [Suspect]
     Active Substance: LITHIUM CARBONATE
     Indication: Product used for unknown indication
     Dosage: 1500MG/DAY
     Route: 065
  9. AMOXICILLIN [Concomitant]
     Active Substance: AMOXICILLIN
     Indication: Tooth loss
     Dosage: 500 MG 3 TIMES/DAY
     Route: 065
  10. Johnson + Johnson (J+J) COVID-19 vaccine [Concomitant]
     Indication: COVID-19 immunisation
     Route: 065

REACTIONS (7)
  - Neutrophil count increased [Unknown]
  - White blood cell count increased [Unknown]
  - COVID-19 [Unknown]
  - Drooling [Unknown]
  - Off label use [Unknown]
  - Immunosuppression [Unknown]
  - Tooth loss [Unknown]
